FAERS Safety Report 8294178-X (Version None)
Quarter: 2012Q2

REPORT INFORMATION
  Report Type: 
  Country: None (occurrence: None)
  Receive Date: 20120418
  Receipt Date: 20120413
  Transmission Date: 20120825
  Serious: Yes (Other)
  Sender: FDA-Public Use
  Company Number: PHHY2012NL025115

PATIENT
  Sex: Male

DRUGS (6)
  1. ZOMETA [Suspect]
     Indication: PROSTATE CANCER METASTATIC
     Dosage: 4 MG/ 100 ML, 1X PER 28 DAYS
     Dates: start: 20101112
  2. DICLOFENAC [Concomitant]
     Dosage: 50 MG X 3
  3. ZOMETA [Suspect]
     Dosage: 4 MG/ 100 ML, 1X PER 28 DAYS
     Dates: start: 20120125
  4. ZOMETA [Suspect]
     Dosage: 4 MG/ 100 ML, 1X PER 28 DAYS
     Dates: start: 20101130
  5. FENTANYL-100 [Concomitant]
     Dosage: 125 MG, UNK
  6. ZOMETA [Suspect]
     Dosage: 4 MG/ 100 ML, 1X PER 28 DAYS
     Dates: start: 20120221, end: 20120314

REACTIONS (5)
  - NEOPLASM PROGRESSION [None]
  - NEOPLASM MALIGNANT [None]
  - SPINAL CORD DISORDER [None]
  - TERMINAL STATE [None]
  - GENERAL PHYSICAL HEALTH DETERIORATION [None]
